FAERS Safety Report 10159035 (Version 1)
Quarter: 2014Q2

REPORT INFORMATION
  Report Type: Spontaneous
  Country: US (occurrence: US)
  Receive Date: 20140508
  Receipt Date: 20140508
  Transmission Date: 20141212
  Serious: No
  Sender: FDA-Public Use
  Company Number: US-BIOGENIDEC-2014BI040345

PATIENT
  Age: 50 Year
  Sex: Female

DRUGS (6)
  1. TECFIDERA [Suspect]
     Indication: MULTIPLE SCLEROSIS
     Route: 048
     Dates: start: 20140122
  2. BACLOFEN [Concomitant]
  3. BENAZEPRIL HCL [Concomitant]
  4. ESTRADIOL-NORETHINDRONE ACET [Concomitant]
  5. GABAPENTIN [Concomitant]
  6. METOPROLOL SUCCINATE ER [Concomitant]

REACTIONS (2)
  - Peripheral swelling [Unknown]
  - Erythema [Unknown]
